FAERS Safety Report 20770782 (Version 1)
Quarter: 2022Q2

REPORT INFORMATION
  Report Type: Spontaneous
  Country: ES (occurrence: ES)
  Receive Date: 20220429
  Receipt Date: 20220429
  Transmission Date: 20220721
  Serious: Yes (Other)
  Sender: FDA-Public Use
  Company Number: ES-STADA-246957

PATIENT
  Age: 3 Year
  Sex: Female

DRUGS (5)
  1. TOPIRAMATE [Suspect]
     Active Substance: TOPIRAMATE
     Indication: Epileptic encephalopathy
     Route: 048
  2. LEVETIRACETAM [Suspect]
     Active Substance: LEVETIRACETAM
     Indication: Epileptic encephalopathy
     Route: 065
  3. LACOSAMIDE [Suspect]
     Active Substance: LACOSAMIDE
     Indication: Epileptic encephalopathy
     Route: 065
  4. VALPROIC ACID [Suspect]
     Active Substance: VALPROIC ACID
     Indication: Epileptic encephalopathy
     Route: 065
  5. CARNITINE [Concomitant]
     Active Substance: CARNITINE
     Indication: Supplementation therapy
     Route: 065

REACTIONS (4)
  - Fanconi syndrome [Recovered/Resolved]
  - Osteopenia [Unknown]
  - Bone disorder [Unknown]
  - Fracture [Unknown]
